FAERS Safety Report 17272138 (Version 1)
Quarter: 2020Q1

REPORT INFORMATION
  Report Type: Spontaneous
  Country: US (occurrence: US)
  Receive Date: 20200114
  Receipt Date: 20200114
  Transmission Date: 20200409
  Serious: Yes (Hospitalization)
  Sender: FDA-Public Use
  Company Number: None

PATIENT
  Sex: Male

DRUGS (12)
  1. CHILD TYLENOL [Concomitant]
  2. CLONIDINE. [Concomitant]
     Active Substance: CLONIDINE
  3. DIAZEPAM. [Concomitant]
     Active Substance: DIAZEPAM
  4. CLONZEP ODT [Concomitant]
  5. OXCARBAZEPIN SUSP [Concomitant]
  6. PYRIDOXINE [Concomitant]
     Active Substance: PYRIDOXINE
  7. RANITIDINE. [Concomitant]
     Active Substance: RANITIDINE
  8. VIGABATRIN. [Suspect]
     Active Substance: VIGABATRIN
     Indication: EPILEPSY
     Route: 048
     Dates: start: 20180606
  9. PRILOSEC [Concomitant]
     Active Substance: OMEPRAZOLE MAGNESIUM
  10. KEPPRA [Concomitant]
     Active Substance: LEVETIRACETAM
  11. BACLOFEN. [Concomitant]
     Active Substance: BACLOFEN
  12. EPIDIOLEX [Concomitant]
     Active Substance: CANNABIDIOL

REACTIONS (1)
  - Respiratory syncytial virus infection [None]
